FAERS Safety Report 25013640 (Version 5)
Quarter: 2025Q2

REPORT INFORMATION
  Report Type: Spontaneous
  Country: PA (occurrence: PA)
  Receive Date: 20250226
  Receipt Date: 20250429
  Transmission Date: 20250717
  Serious: No
  Sender: PFIZER
  Company Number: PA-PFIZER INC-PV202500021148

PATIENT
  Age: 11 Year
  Sex: Female

DRUGS (1)
  1. GENOTROPIN [Suspect]
     Active Substance: SOMATROPIN
     Dosage: 1 MG, DAILY

REACTIONS (3)
  - Poor quality device used [Unknown]
  - Drug dose omission by device [Unknown]
  - Device mechanical issue [Unknown]

NARRATIVE: CASE EVENT DATE: 20250218
